FAERS Safety Report 5968956-3 (Version None)
Quarter: 2008Q4

REPORT INFORMATION
  Report Type: 
  Country: None (occurrence: None)
  Receive Date: 20081126
  Receipt Date: 20081117
  Transmission Date: 20090506
  Serious: Yes (Other)
  Sender: FDA-Public Use
  Company Number: AU-ROCHE-597502

PATIENT
  Sex: Female

DRUGS (3)
  1. CEFTRIAXONE [Suspect]
     Indication: PNEUMONIA
     Route: 065
     Dates: start: 20080811, end: 20080811
  2. DANAZOL [Concomitant]
  3. SPIRIVA [Concomitant]

REACTIONS (4)
  - ANGIOEDEMA [None]
  - PRURITUS [None]
  - RASH [None]
  - VOMITING [None]
